FAERS Safety Report 20608437 (Version 2)
Quarter: 2022Q1

REPORT INFORMATION
  Report Type: Spontaneous
  Country: FR (occurrence: FR)
  Receive Date: 20220317
  Receipt Date: 20220331
  Transmission Date: 20220423
  Serious: Yes (Life-Threatening, Hospitalization, Other)
  Sender: FDA-Public Use
  Company Number: FR-TEVA-2022-FR-2016737

PATIENT
  Age: 16 Year
  Sex: Female
  Weight: 49 kg

DRUGS (24)
  1. METHOTREXATE [Interacting]
     Active Substance: METHOTREXATE
     Indication: Osteosarcoma metastatic
     Dosage: (18000 MG) PRIMARY NEO ADJUVANT CHEMOTHERAPY
     Route: 042
     Dates: start: 20170808
  2. KETOPROFEN [Interacting]
     Active Substance: KETOPROFEN
     Indication: Product used for unknown indication
     Dosage: EXTENDED RELEASE
     Route: 065
     Dates: start: 20170807
  3. DOXORUBICIN [Suspect]
     Active Substance: DOXORUBICIN
     Indication: Osteosarcoma metastatic
     Dosage: TWO CYCLES OF NEO ADJUVANT REGIMEN [IFO DOX AND IFO DOX DDP]
     Route: 065
  4. IFOSFAMIDE [Suspect]
     Active Substance: IFOSFAMIDE
     Indication: Osteosarcoma metastatic
     Dosage: TWO CYCLE OF NEO ADJUVANT REGIMEN [IFO DOX AND IFO DOX DDP]
     Route: 065
  5. IFOSFAMIDE [Suspect]
     Active Substance: IFOSFAMIDE
     Dosage: ADJUVANT CHEMOTHERAPY WITH 3 CYCLES OF ADRIAMYCINE IFO
     Route: 065
     Dates: start: 20180409, end: 20180618
  6. ADRIAMYCIN [Suspect]
     Active Substance: DOXORUBICIN HYDROCHLORIDE
     Indication: Osteosarcoma metastatic
     Dosage: ADJUVANT CHEMOTHERAPY WITH 3 CYCLES OF ADRIAMYCINE IFO
     Route: 065
     Dates: start: 20180409, end: 20180618
  7. ONDANSETRON [Concomitant]
     Active Substance: ONDANSETRON
     Indication: Prophylaxis of nausea and vomiting
     Route: 065
     Dates: start: 20170807
  8. APREPITANT [Concomitant]
     Active Substance: APREPITANT
     Indication: Prophylaxis of nausea and vomiting
     Route: 065
     Dates: start: 20170807
  9. PALONOSETRON [Concomitant]
     Active Substance: PALONOSETRON
     Indication: Prophylaxis of nausea and vomiting
     Route: 065
     Dates: start: 20170808
  10. METHYLPREDNISOLONE [Concomitant]
     Active Substance: METHYLPREDNISOLONE
     Indication: Prophylaxis of nausea and vomiting
     Route: 065
     Dates: start: 20170807
  11. SEVOFLURANE [Concomitant]
     Active Substance: SEVOFLURANE
     Indication: Product used for unknown indication
     Route: 065
     Dates: start: 201708
  12. DEXAMETHASONE [Concomitant]
     Active Substance: DEXAMETHASONE
     Indication: Product used for unknown indication
     Route: 065
     Dates: start: 201708
  13. KETAMINE [Concomitant]
     Active Substance: KETAMINE
     Indication: Product used for unknown indication
     Route: 065
     Dates: start: 201708
  14. MIDAZOLAM [Concomitant]
     Active Substance: MIDAZOLAM
     Indication: Product used for unknown indication
     Route: 065
     Dates: start: 201708
  15. SUFENTANIL [Concomitant]
     Active Substance: SUFENTANIL
     Indication: Product used for unknown indication
     Route: 065
     Dates: start: 201708
  16. PROPOFOL [Concomitant]
     Active Substance: PROPOFOL
     Indication: Product used for unknown indication
     Route: 065
     Dates: start: 201708
  17. ATRACURIUM [Concomitant]
     Active Substance: ATRACURIUM
     Indication: Product used for unknown indication
     Route: 065
     Dates: start: 201708
  18. TRAMADOL [Concomitant]
     Active Substance: TRAMADOL
     Indication: Product used for unknown indication
     Route: 065
     Dates: start: 201708
  19. NEFOPAM [Concomitant]
     Active Substance: NEFOPAM
     Indication: Product used for unknown indication
     Route: 065
     Dates: start: 201708
  20. CHLORPROMAZINE [Concomitant]
     Active Substance: CHLORPROMAZINE
     Indication: Prophylaxis
     Route: 065
     Dates: start: 201708
  21. NOMEGESTROL [Concomitant]
     Active Substance: NOMEGESTROL
     Indication: Prophylaxis
     Route: 065
     Dates: start: 201708
  22. ENOXAPARIN [Concomitant]
     Active Substance: ENOXAPARIN
     Indication: Prophylaxis
     Route: 065
     Dates: start: 201708
  23. CISPLATIN [Concomitant]
     Active Substance: CISPLATIN
     Indication: Osteosarcoma metastatic
     Dosage: TWO CYCLES OF NEO ADJUVANT REGIMEN [IFO DOX DDP]
     Route: 065
  24. LEUCOVORIN [Concomitant]
     Active Substance: LEUCOVORIN
     Indication: Drug therapy
     Dosage: 20MG
     Route: 065
     Dates: start: 20170809

REACTIONS (15)
  - Thrombocytopenia [Unknown]
  - Neutropenia [Unknown]
  - Toxic epidermal necrolysis [Recovering/Resolving]
  - Hepatic failure [Recovering/Resolving]
  - Pancytopenia [Recovering/Resolving]
  - Diarrhoea [Recovering/Resolving]
  - Vulvovaginal mycotic infection [Recovering/Resolving]
  - Dysphagia [Recovering/Resolving]
  - Stomatitis [Recovering/Resolving]
  - Stevens-Johnson syndrome [Recovering/Resolving]
  - Anaemia [Recovering/Resolving]
  - Febrile neutropenia [Recovering/Resolving]
  - Toxicity to various agents [Recovering/Resolving]
  - Nephropathy toxic [Unknown]
  - Drug interaction [Unknown]

NARRATIVE: CASE EVENT DATE: 20170801
